FAERS Safety Report 15578426 (Version 1)
Quarter: 2018Q4

REPORT INFORMATION
  Report Type: Spontaneous
  Country: US (occurrence: US)
  Receive Date: 20181102
  Receipt Date: 20181102
  Transmission Date: 20190205
  Serious: No
  Sender: FDA-Public Use
  Company Number: US-CHARTWELL PHARMA-2058329

PATIENT
  Age: 78 Year
  Sex: Female
  Weight: 47.63 kg

DRUGS (12)
  1. VITAMIN D [Concomitant]
     Active Substance: CHOLECALCIFEROL
  2. ZETIA [Concomitant]
     Active Substance: EZETIMIBE
  3. ALLEGRA [Concomitant]
     Active Substance: FEXOFENADINE HYDROCHLORIDE
  4. CALCIUM [Concomitant]
     Active Substance: CALCIUM
  5. MAGNESIUM [Concomitant]
     Active Substance: MAGNESIUM
  6. LIPITOR [Concomitant]
     Active Substance: ATORVASTATIN CALCIUM
  7. PRESERVISION (ASCORBIC ACID,BETACAROTENE,CUPRIC OXIDE,TOCOPHERYL ACETA [Concomitant]
  8. ELIQUIS [Concomitant]
     Active Substance: APIXABAN
  9. COQ10 (UBIDECARENONE) [Concomitant]
     Active Substance: UBIDECARENONE
  10. ACETYL L CARNITINE [Concomitant]
  11. PROBIOTICS NOS [Concomitant]
     Active Substance: PROBIOTICS NOS
  12. DOXYCYCLINE HYCLATE. [Suspect]
     Active Substance: DOXYCYCLINE HYCLATE
     Indication: LYME DISEASE
     Route: 048
     Dates: start: 20180528, end: 20180601

REACTIONS (1)
  - Abdominal pain [Recovered/Resolved]

NARRATIVE: CASE EVENT DATE: 20180529
